FAERS Safety Report 14759786 (Version 4)
Quarter: 2019Q3

REPORT INFORMATION
  Report Type: Spontaneous
  Country: US (occurrence: US)
  Receive Date: 20180413
  Receipt Date: 20190711
  Transmission Date: 20191004
  Serious: Yes (Other)
  Sender: FDA-Public Use
  Company Number: US-ALLERGAN-1820150US

PATIENT
  Sex: Female

DRUGS (13)
  1. ARMOUR THYROID [Suspect]
     Active Substance: THYROID, PORCINE
     Dosage: 75 MG, UNK
     Route: 048
     Dates: start: 2010
  2. VITAMIN B6 [Concomitant]
     Active Substance: PYRIDOXINE HYDROCHLORIDE
  3. GLUCOSAMINE CHONDROITIN [Concomitant]
     Active Substance: CHONDROITIN SULFATE (BOVINE)\GLUCOSAMINE HYDROCHLORIDE
  4. ARMOUR THYROID [Suspect]
     Active Substance: THYROID, PORCINE
     Dosage: UNK
     Route: 048
     Dates: end: 2000
  5. MAGNESIUM [Concomitant]
     Active Substance: MAGNESIUM
  6. ARMOUR THYROID [Suspect]
     Active Substance: THYROID, PORCINE
     Indication: HYPOTHYROIDISM
     Dosage: 90 MG, TID
     Route: 048
  7. VITAMIN E [Concomitant]
     Active Substance: .ALPHA.-TOCOPHEROL
  8. ZINC. [Concomitant]
     Active Substance: ZINC
  9. LUTEINE [Concomitant]
  10. VITAMIN C [Concomitant]
     Active Substance: ASCORBIC ACID
  11. ARMOUR THYROID [Suspect]
     Active Substance: THYROID, PORCINE
     Dosage: 90 MG, QD
     Route: 048
  12. SYNTHROID [Suspect]
     Active Substance: LEVOTHYROXINE SODIUM
     Indication: HYPOTHYROIDISM
     Dosage: UNK
     Route: 065
     Dates: start: 2000, end: 2010
  13. VITAMIN B12 [Concomitant]
     Active Substance: CYANOCOBALAMIN
     Dosage: UNK, Q WEEK

REACTIONS (4)
  - Brain neoplasm [Recovering/Resolving]
  - Infection [Unknown]
  - Arthropathy [Unknown]
  - Hypothyroidism [Recovering/Resolving]

NARRATIVE: CASE EVENT DATE: 1999
